FAERS Safety Report 16695269 (Version 1)
Quarter: 2019Q3

REPORT INFORMATION
  Report Type: Report from Study
  Country: US (occurrence: US)
  Receive Date: 20190813
  Receipt Date: 20190813
  Transmission Date: 20191004
  Serious: Yes (Other)
  Sender: FDA-Public Use
  Company Number: US-ROCHE-2377243

PATIENT

DRUGS (2)
  1. BEVACIZUMAB. [Suspect]
     Active Substance: BEVACIZUMAB
     Indication: GLIOBLASTOMA
     Route: 065
  2. OFRANERGENE OBADENOVEC [Suspect]
     Active Substance: OFRANERGENE OBADENOVEC
     Indication: GLIOBLASTOMA
     Dosage: 10E13VPS
     Route: 065

REACTIONS (2)
  - Neurotoxicity [Unknown]
  - Pyrexia [Unknown]
